FAERS Safety Report 9542120 (Version 3)
Quarter: 2013Q4

REPORT INFORMATION
  Report Type: Spontaneous
  Country: US (occurrence: US)
  Receive Date: 20130923
  Receipt Date: 20131106
  Transmission Date: 20140711
  Serious: Yes (Death, Other)
  Sender: FDA-Public Use
  Company Number: US-ASTELLAS-2013US009992

PATIENT
  Age: 57 Year
  Sex: Male

DRUGS (1)
  1. PROGRAF [Suspect]
     Indication: LUNG TRANSPLANT
     Dosage: 1 MG, BID
     Route: 048
     Dates: start: 20090928

REACTIONS (3)
  - Off label use [Unknown]
  - Cardiac disorder [Fatal]
  - Atrioventricular block complete [Recovered/Resolved]
